FAERS Safety Report 19648809 (Version 1)
Quarter: 2021Q3

REPORT INFORMATION
  Report Type: Spontaneous
  Country: FR (occurrence: FR)
  Receive Date: 20210802
  Receipt Date: 20210802
  Transmission Date: 20211014
  Serious: Yes (Hospitalization)
  Sender: FDA-Public Use
  Company Number: FR-MYLANLABS-2021M1047244

PATIENT
  Age: 1 Hour
  Sex: Female

DRUGS (1)
  1. LAMOTRIGINE. [Suspect]
     Active Substance: LAMOTRIGINE
     Indication: EPILEPSY
     Dosage: 15 DOSAGE FORM
     Route: 064
     Dates: start: 20210105, end: 20210120

REACTIONS (6)
  - Foetal exposure during pregnancy [Recovered/Resolved]
  - Withdrawal syndrome [Recovered/Resolved]
  - Cyanosis [Recovered/Resolved]
  - Bradycardia [Recovered/Resolved]
  - Neonatal seizure [Recovered/Resolved]
  - Hypertonia [Recovered/Resolved]

NARRATIVE: CASE EVENT DATE: 20210120
